FAERS Safety Report 7405585-9 (Version None)
Quarter: 2011Q2

REPORT INFORMATION
  Report Type: 
  Country: None (occurrence: None)
  Receive Date: 20110411
  Receipt Date: 20110328
  Transmission Date: 20111010
  Serious: Yes (Other)
  Sender: FDA-Public Use
  Company Number: PHHY2011FR18101

PATIENT
  Age: 74 Year
  Sex: Male
  Weight: 72 kg

DRUGS (18)
  1. STALEVO 100 [Suspect]
     Dosage: (200/75/18.75 MG) 111 DF PER DAY
     Route: 048
     Dates: start: 20100601
  2. EXFORGE [Concomitant]
     Indication: HYPERTENSION
     Dosage: 160 MG /DAY
     Dates: start: 20100601, end: 20100901
  3. SINEMET [Concomitant]
     Indication: PARKINSON'S DISEASE
     Dosage: UNK
     Dates: start: 20100528, end: 20100601
  4. SIFROL [Concomitant]
     Indication: PARKINSON'S DISEASE
     Dosage: 0.36 MG, TID
     Dates: start: 20060701
  5. STALEVO 100 [Suspect]
     Dosage: (200/100/25 MG ) 5 DF, Q4H
     Route: 048
  6. OTRASEL [Concomitant]
     Dosage: UNK
     Dates: start: 20070701, end: 20100118
  7. ICAZ [Concomitant]
     Indication: HYPERTENSION
     Dosage: 5 MG, QD
     Dates: start: 20070701
  8. ATHYMIL [Concomitant]
     Dosage: 30 MG, QD
     Dates: start: 20100601
  9. AZILECT [Concomitant]
     Indication: PARKINSON'S DISEASE
     Dosage: UNK
  10. SIFROL [Concomitant]
     Dosage: 0.7 MG, TID
     Dates: start: 20070101, end: 20100528
  11. STALEVO 100 [Suspect]
     Indication: PARKINSON'S DISEASE
     Dosage: (200/100/25 MG) 1 DF, TID
     Route: 048
     Dates: start: 20090708
  12. AZILECT [Concomitant]
     Dosage: 1 MG, QD
     Dates: start: 20100601
  13. PROPOFAN [Concomitant]
     Indication: PERIARTHRITIS
     Dosage: 1 DF, BID
     Dates: start: 20050401
  14. EXFORGE [Concomitant]
     Dosage: 80 MG,/ DAY
     Dates: start: 20100901
  15. OTRASEL [Concomitant]
     Indication: PARKINSON'S DISEASE
     Dosage: UNK
     Dates: start: 20050401, end: 20060701
  16. STALEVO 100 [Suspect]
     Dosage: (200/ 150/37.5 MG) 5 DF, Q4H
     Route: 048
     Dates: start: 20100118, end: 20100528
  17. STALEVO 100 [Suspect]
     Dosage: (200/100/25 MG ) 9 TABLETS/DAY
     Route: 048
     Dates: start: 20100903
  18. ATHYMIL [Concomitant]
     Dosage: 60 MG, QD
     Dates: start: 20100901

REACTIONS (3)
  - PROSTATE CANCER [None]
  - WEIGHT INCREASED [None]
  - PROSTATIC SPECIFIC ANTIGEN INCREASED [None]
